FAERS Safety Report 17408478 (Version 2)
Quarter: 2020Q1

REPORT INFORMATION
  Report Type: Spontaneous
  Country: US (occurrence: US)
  Receive Date: 20200212
  Receipt Date: 20200212
  Transmission Date: 20200409
  Serious: Yes (Death, Other)
  Sender: FDA-Public Use
  Company Number: US-PFIZER INC-2020053354

PATIENT
  Age: 65 Year
  Sex: Male

DRUGS (18)
  1. CYTARABINE. [Suspect]
     Active Substance: CYTARABINE
     Indication: ACUTE MYELOID LEUKAEMIA
     Dosage: 336 MG, CYCLIC (OVER THREE WEEKS)
     Route: 037
  2. CYTARABINE. [Suspect]
     Active Substance: CYTARABINE
     Dosage: UNK
     Route: 037
     Dates: start: 19750130
  3. DOXORUBICIN HYDROCHLORIDE. [Concomitant]
     Active Substance: DOXORUBICIN HYDROCHLORIDE
     Indication: ACUTE MYELOID LEUKAEMIA
     Dosage: 10 MG/M2, CYCLIC (ON DAYS 1, 3 AND 5)
     Dates: start: 1974
  4. CYTARABINE. [Suspect]
     Active Substance: CYTARABINE
     Dosage: UNK
     Route: 037
     Dates: start: 19750127
  5. VINCRISTINE [Concomitant]
     Active Substance: VINCRISTINE
     Dosage: UNK, CYCLIC (THIRD CYCLE)
     Route: 042
     Dates: start: 1974
  6. VINCRISTINE [Concomitant]
     Active Substance: VINCRISTINE
     Dosage: UNK, CYCLIC (FOURTH CYCLE)
     Route: 042
     Dates: start: 1974
  7. CYTARABINE. [Suspect]
     Active Substance: CYTARABINE
     Dosage: UNK
     Route: 037
     Dates: start: 19750113
  8. CYTARABINE. [Suspect]
     Active Substance: CYTARABINE
     Dosage: UNK
     Route: 037
     Dates: start: 19750122
  9. DOXORUBICIN HYDROCHLORIDE. [Concomitant]
     Active Substance: DOXORUBICIN HYDROCHLORIDE
     Dosage: UNK, CYCLIC (THIRD CYCLE)
     Dates: start: 1974
  10. VINCRISTINE [Concomitant]
     Active Substance: VINCRISTINE
     Indication: MYELOID LEUKAEMIA
     Dosage: 2 MG, CYCLIC (DAYS 1 AND 5)
     Route: 042
     Dates: start: 1974
  11. CYTARABINE. [Suspect]
     Active Substance: CYTARABINE
     Dosage: 80 MG/M2, DAILY (CONTINUOUS INFUSION)
     Dates: start: 1974
  12. CYTARABINE. [Suspect]
     Active Substance: CYTARABINE
     Dosage: UNK, CYCLIC (THIRD CYCLE)
     Route: 037
     Dates: start: 1974
  13. PREDNISONE. [Concomitant]
     Active Substance: PREDNISONE
     Dosage: UNK, CYCLIC (THIRD CYCLE)
     Route: 048
     Dates: start: 1974
  14. CYTARABINE. [Suspect]
     Active Substance: CYTARABINE
     Dosage: UNK
     Route: 037
     Dates: start: 19750203
  15. CYTARABINE. [Suspect]
     Active Substance: CYTARABINE
     Dosage: UNK, CYCLIC (FOURTH CYCLE)
     Route: 037
     Dates: start: 1974
  16. DOXORUBICIN HYDROCHLORIDE. [Concomitant]
     Active Substance: DOXORUBICIN HYDROCHLORIDE
     Dosage: UNK, CYCLIC (FOURTH CYCLE)
     Dates: start: 1974
  17. PREDNISONE. [Concomitant]
     Active Substance: PREDNISONE
     Dosage: UNK, CYCLIC (FOURTH CYCLE)
     Route: 048
     Dates: start: 1974
  18. PREDNISONE. [Concomitant]
     Active Substance: PREDNISONE
     Indication: ACUTE MYELOID LEUKAEMIA
     Dosage: 40 MG/M2, DAILY
     Route: 048
     Dates: start: 1974

REACTIONS (1)
  - Paraparesis [Recovering/Resolving]

NARRATIVE: CASE EVENT DATE: 1974
